FAERS Safety Report 5262087-6 (Version None)
Quarter: 2007Q1

REPORT INFORMATION
  Report Type: 
  Country: None (occurrence: None)
  Receive Date: 20070311
  Receipt Date: 20070228
  Transmission Date: 20070707
  Serious: Yes (Hospitalization)
  Sender: FDA-Public Use
  Company Number: 2006UW26179

PATIENT
  Sex: Female
  Weight: 100 kg

DRUGS (2)
  1. SEROQUEL [Suspect]
     Indication: SLEEP DISORDER
     Dosage: 25-100 MG
     Route: 048
     Dates: start: 20020323, end: 20060214
  2. HALDOL [Concomitant]
     Dates: start: 19971101

REACTIONS (5)
  - DIABETES MELLITUS [None]
  - HALLUCINATION, AUDITORY [None]
  - HEPATIC ENZYME INCREASED [None]
  - NERVOUSNESS [None]
  - STAPHYLOCOCCAL INFECTION [None]
